FAERS Safety Report 7406259-0 (Version None)
Quarter: 2011Q2

REPORT INFORMATION
  Report Type: 
  Country: None (occurrence: None)
  Receive Date: 20110411
  Receipt Date: 20110328
  Transmission Date: 20111010
  Serious: Yes (Hospitalization)
  Sender: FDA-Public Use
  Company Number: AU-CELGENEUS-008-20785-11011578

PATIENT
  Sex: Female
  Weight: 63 kg

DRUGS (8)
  1. MELPHALAN [Concomitant]
     Route: 065
  2. CRESTOR [Concomitant]
     Dosage: 10 MILLIGRAM
     Route: 065
     Dates: start: 20050101
  3. THALOMID [Suspect]
     Indication: MULTIPLE MYELOMA
     Dosage: 100 MILLIGRAM
     Route: 048
     Dates: start: 20100716, end: 20100817
  4. NEXIUM [Concomitant]
     Dosage: 20 MILLIGRAM
     Route: 065
     Dates: start: 20100629
  5. FOSANIC [Concomitant]
     Indication: OSTEOPOROSIS
     Dosage: 10 MILLIGRAM
     Route: 065
     Dates: start: 20070101
  6. PREDNISONE [Concomitant]
     Route: 065
  7. MS CONTIN [Concomitant]
     Indication: PAIN
     Dosage: 20 MILLIGRAM
     Route: 065
     Dates: start: 20100626
  8. OSTELIN [Concomitant]
     Indication: VITAMIN D DEFICIENCY
     Route: 065
     Dates: start: 20100629

REACTIONS (1)
  - HEPATITIS CHOLESTATIC [None]
